FAERS Safety Report 9192200 (Version 1)
Quarter: 2013Q1

REPORT INFORMATION
  Report Type: Spontaneous
  Country: US (occurrence: None)
  Receive Date: 20130326
  Receipt Date: 20130326
  Transmission Date: 20140127
  Serious: Yes (Hospitalization)
  Sender: FDA-Public Use
  Company Number: None

PATIENT
  Age: 74 Year
  Sex: Male

DRUGS (11)
  1. PHENYTOIN [Suspect]
     Indication: CONVULSION
     Route: 050
  2. AMLODIPINE [Concomitant]
  3. AMOXICILLIN [Concomitant]
  4. BACLOFEN [Concomitant]
  5. FAMOTIDINE [Concomitant]
  6. FLUOXETINE [Concomitant]
  7. GUAIFENESIN [Concomitant]
  8. LANTUS [Concomitant]
  9. HUMALOG [Concomitant]
  10. SUCRALFATE [Concomitant]
  11. TERAZOSIN [Concomitant]

REACTIONS (2)
  - Encephalopathy [None]
  - Coma [None]
